FAERS Safety Report 17801496 (Version 1)
Quarter: 2020Q2

REPORT INFORMATION
  Report Type: Spontaneous
  Country: US (occurrence: US)
  Receive Date: 20200517
  Receipt Date: 20200517
  Transmission Date: 20200714
  Serious: Yes (Other)
  Sender: FDA-Public Use
  Company Number: None

PATIENT
  Age: 51 Year
  Sex: Female

DRUGS (1)
  1. CAPECITABINE 500MG NOVADOZ PHARMACEUTICALS [Suspect]
     Active Substance: CAPECITABINE
     Indication: BREAST CANCER FEMALE
     Dosage: ?          OTHER FREQUENCY:BID X 14 DAYS;?
     Route: 048
     Dates: start: 20200129, end: 20200515

REACTIONS (6)
  - Blister [None]
  - Palmar-plantar erythrodysaesthesia syndrome [None]
  - Skin discolouration [None]
  - Nail discolouration [None]
  - Skin weeping [None]
  - Pain [None]

NARRATIVE: CASE EVENT DATE: 20200415
